FAERS Safety Report 8416864-0 (Version None)
Quarter: 2012Q2

REPORT INFORMATION
  Report Type: 
  Country: None (occurrence: None)
  Receive Date: 20120606
  Receipt Date: 20120601
  Transmission Date: 20120825
  Serious: Yes (Other)
  Sender: FDA-Public Use
  Company Number: US-PFIZER INC-2012132717

PATIENT
  Sex: Female
  Weight: 72.562 kg

DRUGS (4)
  1. LISINOPRIL [Concomitant]
     Indication: HYPERTENSION
     Dosage: 10 MG, 1X/DAY
  2. DILANTIN-125 [Suspect]
     Indication: CONVULSION
     Dosage: 100 MG, 8X/DAY
  3. DILANTIN-125 [Suspect]
     Dosage: UNK
     Dates: start: 20120501
  4. LIPITOR [Concomitant]
     Indication: BLOOD CHOLESTEROL ABNORMAL
     Dosage: '30MG' ,DAILY

REACTIONS (2)
  - CONVULSION [None]
  - DRUG ADMINISTRATION ERROR [None]
